FAERS Safety Report 26127592 (Version 2)
Quarter: 2025Q4

REPORT INFORMATION
  Report Type: Spontaneous
  Country: US (occurrence: US)
  Receive Date: 20251206
  Receipt Date: 20251230
  Transmission Date: 20260119
  Serious: No
  Sender: HETERO
  Company Number: US-HETERO-HET2025US07243

PATIENT
  Sex: Male
  Weight: 79.8 kg

DRUGS (1)
  1. PANTOPRAZOLE [Suspect]
     Active Substance: PANTOPRAZOLE
     Indication: Gastric pH decreased
     Dosage: 80 MILLIGRAM, BID
     Route: 048

REACTIONS (1)
  - Drug ineffective [Unknown]
